FAERS Safety Report 7289906-6 (Version None)
Quarter: 2011Q1

REPORT INFORMATION
  Report Type: 
  Country: None (occurrence: None)
  Receive Date: 20110214
  Receipt Date: 20110201
  Transmission Date: 20110831
  Serious: Yes (Hospitalization, Other)
  Sender: FDA-Public Use
  Company Number: HU-ELI_LILLY_AND_COMPANY-HU201012004269

PATIENT
  Age: 63 Year
  Sex: Female

DRUGS (10)
  1. FORTEO [Suspect]
     Dosage: 20UG/80UL, DAILY (1/D)
     Route: 058
  2. FOSAMAX [Concomitant]
     Dates: start: 20080101, end: 20100801
  3. BETALOC [Concomitant]
  4. PRETANIX [Concomitant]
  5. TREXAN [Concomitant]
  6. ORAL ANTIDIABETICS [Concomitant]
  7. AMILORID [Concomitant]
  8. ARCOXIA [Concomitant]
  9. EXFORGE [Concomitant]
  10. MEDROL [Concomitant]

REACTIONS (2)
  - PNEUMOTHORAX [None]
  - RIB FRACTURE [None]
